FAERS Safety Report 14768887 (Version 1)
Quarter: 2018Q2

REPORT INFORMATION
  Report Type: Other
  Country: GB (occurrence: GB)
  Receive Date: 20180417
  Receipt Date: 20180417
  Transmission Date: 20180711
  Serious: Yes (Other)
  Sender: FDA-Public Use
  Company Number: GB-BIO PRODUCTS LABORATORY LTD-2045863

PATIENT
  Age: 78 Year
  Sex: Female

DRUGS (6)
  1. CYCLOPHOSPHAMIDE. [Concomitant]
     Active Substance: CYCLOPHOSPHAMIDE
  2. BORTEZOMIB [Concomitant]
     Active Substance: BORTEZOMIB
  3. DEXAMETHASONE. [Concomitant]
     Active Substance: DEXAMETHASONE
  4. GENERIC IVIG [Suspect]
     Active Substance: HUMAN IMMUNOGLOBULIN G
     Indication: XANTHOGRANULOMA
     Route: 042
  5. THALIDOMIDE [Concomitant]
     Active Substance: THALIDOMIDE
  6. LENALIDOMIDE [Concomitant]
     Active Substance: LENALIDOMIDE

REACTIONS (1)
  - Cardiac failure congestive [Unknown]
